FAERS Safety Report 7131063-0 (Version None)
Quarter: 2010Q4

REPORT INFORMATION
  Report Type: 
  Country: None (occurrence: None)
  Receive Date: 20101201
  Receipt Date: 20101123
  Transmission Date: 20110411
  Serious: Yes (Other)
  Sender: FDA-Public Use
  Company Number: US-GENZYME-CERZ-1001674

PATIENT
  Sex: Female

DRUGS (12)
  1. CEREZYME [Suspect]
     Indication: GAUCHER'S DISEASE
     Dosage: 3600 U, Q2W
     Route: 042
     Dates: start: 20101028
  2. CEREZYME [Suspect]
     Dosage: 3600 U, Q2W
     Route: 042
     Dates: start: 19981110, end: 20100216
  3. CEREZYME [Suspect]
     Dosage: 2000 U, Q2W
     Route: 042
     Dates: start: 20100303, end: 20101012
  4. FOSAMAX [Concomitant]
     Indication: PRODUCT USED FOR UNKNOWN INDICATION
     Dosage: 70 MG, 1X/W
     Route: 048
  5. LOVENOX [Concomitant]
     Indication: PRODUCT USED FOR UNKNOWN INDICATION
     Dosage: 80 MG, Q12HR
     Route: 058
  6. GABAPENTIN [Concomitant]
     Indication: PRODUCT USED FOR UNKNOWN INDICATION
     Dosage: 200 MG, TID
     Route: 048
  7. SYNTHROID [Concomitant]
     Indication: PRODUCT USED FOR UNKNOWN INDICATION
     Dosage: 100 MG, QD
     Route: 048
  8. METOPROLOL [Concomitant]
     Indication: PRODUCT USED FOR UNKNOWN INDICATION
     Dosage: 50 MG, QD
     Route: 048
  9. SINGULAIR [Concomitant]
     Indication: PRODUCT USED FOR UNKNOWN INDICATION
     Dosage: 10 MG, QD
     Route: 048
  10. ZAVESCA [Concomitant]
     Indication: GAUCHER'S DISEASE
     Dosage: 100 MG, QD
     Route: 048
  11. LIPITOR [Concomitant]
     Indication: PRODUCT USED FOR UNKNOWN INDICATION
     Dosage: 10 MG, UNK
     Route: 048
  12. ALBUTEROL [Concomitant]
     Indication: ASTHMA
     Dosage: UNK
     Route: 048

REACTIONS (1)
  - MENORRHAGIA [None]
